FAERS Safety Report 8392524-X (Version None)
Quarter: 2012Q2

REPORT INFORMATION
  Report Type: 
  Country: None (occurrence: None)
  Receive Date: 20120529
  Receipt Date: 20120518
  Transmission Date: 20120825
  Serious: Yes (Hospitalization, Other)
  Sender: FDA-Public Use
  Company Number: US-MERCK-1110USA00792

PATIENT
  Age: 73 Year
  Sex: Female

DRUGS (2)
  1. FOSAMAX [Suspect]
     Indication: OSTEOPOROSIS
     Route: 048
     Dates: start: 20010701, end: 20100201
  2. FOSAMAX PLUS D [Suspect]
     Indication: OSTEOPOROSIS
     Route: 048
     Dates: start: 20051001

REACTIONS (21)
  - BLOOD CHOLESTEROL INCREASED [None]
  - COMPRESSION FRACTURE [None]
  - FEMUR FRACTURE [None]
  - CARDIAC DISORDER [None]
  - HYPERTENSION [None]
  - VITAMIN D DEFICIENCY [None]
  - FRACTURE DELAYED UNION [None]
  - INTERVERTEBRAL DISC DEGENERATION [None]
  - TIBIA FRACTURE [None]
  - SPINAL FRACTURE [None]
  - ARTHRITIS [None]
  - INTRANEURAL CYST [None]
  - BREAST CANCER [None]
  - GALLBLADDER DISORDER [None]
  - TENDONITIS [None]
  - FALL [None]
  - SPINAL COLUMN STENOSIS [None]
  - ROTATOR CUFF SYNDROME [None]
  - ANKLE FRACTURE [None]
  - HAND FRACTURE [None]
  - DEVICE FAILURE [None]
